FAERS Safety Report 16142160 (Version 2)
Quarter: 2019Q2

REPORT INFORMATION
  Report Type: Spontaneous
  Country: US (occurrence: US)
  Receive Date: 20190401
  Receipt Date: 20190412
  Transmission Date: 20190711
  Serious: Yes (Other)
  Sender: FDA-Public Use
  Company Number: US-SA-2019SA085398

PATIENT
  Age: 52 Year
  Sex: Male

DRUGS (1)
  1. TOUJEO [Suspect]
     Active Substance: INSULIN GLARGINE
     Indication: DIABETES MELLITUS
     Dosage: 70 UNITS SLIDING SCALE INSULIN 4 TIMES A DAY WITH MEAL
     Route: 065

REACTIONS (4)
  - Inappropriate schedule of product administration [Unknown]
  - Product dose omission [Unknown]
  - Device operational issue [Unknown]
  - Diabetes mellitus inadequate control [Unknown]
